FAERS Safety Report 19032557 (Version 1)
Quarter: 2021Q1

REPORT INFORMATION
  Report Type: Spontaneous
  Country: CA (occurrence: CA)
  Receive Date: 20210319
  Receipt Date: 20210319
  Transmission Date: 20210420
  Serious: Yes (Hospitalization)
  Sender: FDA-Public Use
  Company Number: CA-TEVA-2021-CA-1890338

PATIENT
  Age: 74 Year
  Sex: Male

DRUGS (6)
  1. ONDANSETRON [Concomitant]
     Active Substance: ONDANSETRON
  2. METOCLOPRAMIDE. [Concomitant]
     Active Substance: METOCLOPRAMIDE
  3. CISPLATIN INJECTION [Suspect]
     Active Substance: CISPLATIN
     Route: 065
  4. APREPITANT TRI?PACK [Concomitant]
  5. DEXAMETHASONE. [Concomitant]
     Active Substance: DEXAMETHASONE
  6. ETOPOSIDE. [Suspect]
     Active Substance: ETOPOSIDE
     Route: 065

REACTIONS (7)
  - Presyncope [Unknown]
  - Rib fracture [Unknown]
  - Diarrhoea [Unknown]
  - Pancytopenia [Unknown]
  - Fall [Unknown]
  - Hypokalaemia [Unknown]
  - Asthenia [Unknown]
